FAERS Safety Report 12737240 (Version 1)
Quarter: 2016Q3

REPORT INFORMATION
  Report Type: Spontaneous
  Country: US (occurrence: US)
  Receive Date: 20160913
  Receipt Date: 20160913
  Transmission Date: 20161109
  Serious: Yes (Death)
  Sender: FDA-Public Use
  Company Number: US-BAYER-2016-177234

PATIENT
  Age: 62 Year
  Sex: Male

DRUGS (1)
  1. CAMPHO-PHENIQUE ANTISEPTIC LIQUID [Suspect]
     Active Substance: CAMPHORATED PHENOL
     Dosage: 1 DF, UNK
     Route: 048

REACTIONS (2)
  - Myocardial infarction [Fatal]
  - Product use issue [Unknown]
